FAERS Safety Report 13051829 (Version 1)
Quarter: 2016Q4

REPORT INFORMATION
  Report Type: Report from Study
  Country: IL (occurrence: IL)
  Receive Date: 20161221
  Receipt Date: 20161221
  Transmission Date: 20170207
  Serious: No
  Sender: FDA-Public Use
  Company Number: IL-JNJFOC-20160619221

PATIENT
  Age: 39 Year
  Sex: Female

DRUGS (2)
  1. OPTALGIN [Concomitant]
     Active Substance: METAMIZOLE
     Route: 065
  2. STELARA [Suspect]
     Active Substance: USTEKINUMAB
     Indication: CROHN^S DISEASE
     Dosage: LOADING, WEEK 0, 1 AND 2 AND EVERY 8 WEEKS
     Route: 058
     Dates: start: 20160615

REACTIONS (10)
  - Rash [Not Recovered/Not Resolved]
  - Genital infection [Not Recovered/Not Resolved]
  - Chills [Recovering/Resolving]
  - Abdominal pain [Not Recovered/Not Resolved]
  - Abdominal pain upper [Unknown]
  - Off label use [Unknown]
  - Asthenia [Recovering/Resolving]
  - Product use issue [Unknown]
  - Skin infection [Not Recovered/Not Resolved]
  - Diarrhoea [Recovering/Resolving]

NARRATIVE: CASE EVENT DATE: 20160615
